FAERS Safety Report 7469961-0 (Version None)
Quarter: 2011Q2

REPORT INFORMATION
  Report Type: 
  Country: None (occurrence: None)
  Receive Date: 20110510
  Receipt Date: 20110428
  Transmission Date: 20111010
  Serious: Yes (Hospitalization)
  Sender: FDA-Public Use
  Company Number: US-AMGEN-USASP2011022223

PATIENT
  Age: 55 Year
  Sex: Male

DRUGS (1)
  1. ENBREL [Suspect]
     Indication: RHEUMATOID ARTHRITIS
     Dosage: 25 MG, 2 TIMES/WK
     Dates: start: 20000101

REACTIONS (5)
  - ASTHENIA [None]
  - JOINT SWELLING [None]
  - ARTHRITIS [None]
  - RHEUMATOID ARTHRITIS [None]
  - FINGER DEFORMITY [None]
